FAERS Safety Report 8665311 (Version 7)
Quarter: 2014Q2

REPORT INFORMATION
  Report Type: Report from Study
  Country: JP (occurrence: JP)
  Receive Date: 20120716
  Receipt Date: 20140616
  Transmission Date: 20141212
  Serious: Yes (Other)
  Sender: FDA-Public Use
  Company Number: JP-JNJFOC-20120303081

PATIENT
  Age: 69 Year
  Sex: Male
  Weight: 82 kg

DRUGS (13)
  1. STELARA [Suspect]
     Indication: PSORIASIS
     Route: 058
     Dates: start: 20130826, end: 20130826
  2. STELARA [Suspect]
     Indication: PSORIASIS
     Route: 058
     Dates: start: 20111109
  3. STELARA [Suspect]
     Indication: PSORIASIS
     Route: 058
     Dates: start: 20131125
  4. STELARA [Suspect]
     Indication: PSORIASIS
     Route: 058
     Dates: start: 20120314
  5. STELARA [Suspect]
     Indication: PSORIASIS
     Route: 058
     Dates: start: 20120606, end: 20120606
  6. STELARA [Suspect]
     Indication: PSORIASIS
     Route: 058
     Dates: start: 20111012
  7. STELARA [Suspect]
     Indication: PSORIASIS
     Route: 058
     Dates: start: 20130515, end: 20130515
  8. STELARA [Suspect]
     Indication: PSORIASIS
     Route: 058
     Dates: start: 20130220, end: 20130220
  9. STELARA [Suspect]
     Indication: PSORIASIS
     Route: 058
     Dates: start: 20121126, end: 20121126
  10. STELARA [Suspect]
     Indication: PSORIASIS
     Route: 058
     Dates: start: 20120829, end: 20120829
  11. MUCODYNE [Concomitant]
     Route: 048
     Dates: start: 20111027
  12. DIACORT [Concomitant]
     Indication: PSORIASIS
     Route: 061
  13. ZYRTEC [Concomitant]
     Indication: PSORIASIS
     Route: 048

REACTIONS (1)
  - Interstitial lung disease [Recovering/Resolving]
